FAERS Safety Report 10426153 (Version 19)
Quarter: 2015Q2

REPORT INFORMATION
  Report Type: Report from Study
  Country: AU (occurrence: AU)
  Receive Date: 20140903
  Receipt Date: 20150630
  Transmission Date: 20150821
  Serious: Yes (Hospitalization, Disabling, Other)
  Sender: FDA-Public Use
  Company Number: AU-ROCHE-1445392

PATIENT
  Age: 62 Year
  Sex: Female

DRUGS (7)
  1. ACTEMRA [Suspect]
     Active Substance: TOCILIZUMAB
     Indication: RHEUMATOID ARTHRITIS
     Route: 042
     Dates: start: 20121217, end: 20150205
  2. DOXYCYCLINE. [Concomitant]
     Active Substance: DOXYCYCLINE
     Dosage: 25MG TABLET X2 DAILY, ONGOING
     Route: 048
  3. ATROVENT [Concomitant]
     Active Substance: IPRATROPIUM BROMIDE
  4. ACTEMRA [Suspect]
     Active Substance: TOCILIZUMAB
     Route: 042
     Dates: start: 20150205
  5. PREDNISOLONE. [Concomitant]
     Active Substance: PREDNISOLONE
     Route: 048
  6. PREDNISOLONE. [Concomitant]
     Active Substance: PREDNISOLONE
     Indication: ARTHRITIS
     Route: 048
  7. CHAMPIX [Concomitant]
     Active Substance: VARENICLINE TARTRATE
     Route: 048

REACTIONS (36)
  - Fall [Unknown]
  - Burnout syndrome [Not Recovered/Not Resolved]
  - Pain [Recovering/Resolving]
  - Urinary tract infection [Recovered/Resolved]
  - Immunodeficiency [Not Recovered/Not Resolved]
  - Sputum purulent [Recovered/Resolved]
  - Flushing [Not Recovered/Not Resolved]
  - Neck pain [Not Recovered/Not Resolved]
  - Purulent discharge [Unknown]
  - Hyperaesthesia [Recovered/Resolved]
  - Fatigue [Not Recovered/Not Resolved]
  - Oral pain [Recovering/Resolving]
  - Contusion [Recovering/Resolving]
  - Musculoskeletal stiffness [Recovering/Resolving]
  - Burning sensation [Unknown]
  - Peripheral swelling [Recovered/Resolved]
  - Peripheral swelling [Not Recovered/Not Resolved]
  - Pain in extremity [Unknown]
  - Sunburn [Not Recovered/Not Resolved]
  - Abdominal pain [Not Recovered/Not Resolved]
  - Pain [Not Recovered/Not Resolved]
  - Musculoskeletal pain [Not Recovered/Not Resolved]
  - Productive cough [Unknown]
  - Lung infection [Unknown]
  - Limb injury [Recovering/Resolving]
  - Lung infection [Not Recovered/Not Resolved]
  - Cough [Unknown]
  - Physical assault [Unknown]
  - Arthralgia [Not Recovered/Not Resolved]
  - Solar lentigo [Recovering/Resolving]
  - Pain in extremity [Not Recovered/Not Resolved]
  - Pneumonia [Recovered/Resolved]
  - Candida infection [Recovering/Resolving]
  - Cheilitis [Recovering/Resolving]
  - Back pain [Not Recovered/Not Resolved]
  - Lower respiratory tract infection [Recovered/Resolved]

NARRATIVE: CASE EVENT DATE: 20140808
